FAERS Safety Report 4895097-9 (Version None)
Quarter: 2006Q1

REPORT INFORMATION
  Report Type: 
  Country: None (occurrence: None)
  Receive Date: 20060130
  Receipt Date: 20051228
  Transmission Date: 20060701
  Serious: Yes (Hospitalization)
  Sender: FDA-Public Use
  Company Number: FR-BRISTOL-MYERS SQUIBB COMPANY-13236146

PATIENT
  Age: 58 Year
  Sex: Male

DRUGS (6)
  1. HOLOXAN [Suspect]
     Indication: MANTLE CELL LYMPHOMA
     Route: 042
     Dates: start: 20050707, end: 20050723
  2. DEROXAT [Suspect]
     Indication: DYSTHYMIC DISORDER
     Route: 048
  3. UROMITEXAN [Concomitant]
     Dates: start: 20050707, end: 20050723
  4. SOLUDECADRON [Concomitant]
     Dates: start: 20050707, end: 20050723
  5. MABTHERA [Concomitant]
     Dates: start: 20050719
  6. VEPESIDE-SANDOZ [Concomitant]
     Dates: start: 20050719, end: 20051120

REACTIONS (1)
  - HYPONATRAEMIA [None]
